FAERS Safety Report 10249410 (Version 1)
Quarter: 2014Q2

REPORT INFORMATION
  Report Type: Spontaneous
  Country: US (occurrence: None)
  Receive Date: 20140619
  Receipt Date: 20140619
  Transmission Date: 20141212
  Serious: Yes (Hospitalization)
  Sender: FDA-Public Use
  Company Number: None

PATIENT
  Age: 40 Year
  Sex: Male
  Weight: 65.8 kg

DRUGS (2)
  1. BEVACIZUMAB [Suspect]
     Indication: MALIGNANT GLIOMA
     Dosage: 10MG/KG DAYS 1 + 15 IV
     Route: 042
     Dates: start: 20140128, end: 20140522
  2. CARBOPLATIN [Suspect]
     Indication: MALIGNANT GLIOMA
     Dosage: AUG 6 DAY 1 IV
     Route: 042
     Dates: start: 20140213, end: 20140424

REACTIONS (5)
  - Asthenia [None]
  - Dehydration [None]
  - Decreased appetite [None]
  - Dysphagia [None]
  - VIIth nerve paralysis [None]
